FAERS Safety Report 15704160 (Version 1)
Quarter: 2018Q4

REPORT INFORMATION
  Report Type: Spontaneous
  Country: US (occurrence: US)
  Receive Date: 20181127
  Receipt Date: 20181127
  Transmission Date: 20190205
  Serious: Yes (Disabling)
  Sender: FDA-Public Use
  Company Number: None

PATIENT
  Age: 32 Year
  Sex: Female
  Weight: 121.5 kg

DRUGS (1)
  1. AIMOVIG [Suspect]
     Active Substance: ERENUMAB-AOOE
     Indication: MIGRAINE
     Dosage: ?          QUANTITY:2 INJECTION(S);?
     Route: 058
     Dates: start: 20180927, end: 20181127

REACTIONS (6)
  - Insomnia [None]
  - Myalgia [None]
  - Visual impairment [None]
  - Weight increased [None]
  - Infection [None]
  - Dizziness [None]

NARRATIVE: CASE EVENT DATE: 20181001
